FAERS Safety Report 7764877-4 (Version None)
Quarter: 2011Q3

REPORT INFORMATION
  Report Type: 
  Country: None (occurrence: None)
  Receive Date: 20110921
  Receipt Date: 20110915
  Transmission Date: 20111222
  Serious: Yes (Other)
  Sender: FDA-Public Use
  Company Number: AU-ROCHE-745851

PATIENT
  Sex: Female
  Weight: 57 kg

DRUGS (4)
  1. ACTEMRA [Suspect]
     Dosage: TOTAL VOLUME:11.2 MLS, DOSE HALVED
     Route: 042
  2. METHOTREXATE [Concomitant]
  3. ACTEMRA [Suspect]
     Indication: RHEUMATOID ARTHRITIS
     Dosage: VOLUME OF INFUSION: 22.4MLS
     Route: 042
     Dates: start: 20091123
  4. CELEBREX [Concomitant]
     Dosage: AS NECESSARY

REACTIONS (2)
  - NEUTROPENIA [None]
  - WHITE BLOOD CELL COUNT INCREASED [None]
